FAERS Safety Report 24529478 (Version 1)
Quarter: 2024Q4

REPORT INFORMATION
  Report Type: Spontaneous
  Country: IE (occurrence: IE)
  Receive Date: 20241021
  Receipt Date: 20241021
  Transmission Date: 20250115
  Serious: Yes (Death, Hospitalization, Other)
  Sender: SANDOZ
  Company Number: None

PATIENT
  Age: 60 Year
  Sex: Female

DRUGS (20)
  1. AZITHROMYCIN [Suspect]
     Active Substance: AZITHROMYCIN
     Indication: Product used for unknown indication
     Dosage: UNK
     Route: 065
  2. AZITHROMYCIN [Suspect]
     Active Substance: AZITHROMYCIN
     Dosage: UNK
     Route: 065
  3. AZITHROMYCIN [Suspect]
     Active Substance: AZITHROMYCIN
     Dosage: UNK
     Route: 065
  4. AUGMENTIN [Suspect]
     Active Substance: AMOXICILLIN\CLAVULANATE POTASSIUM
     Dosage: START DATE- 04-OCT-2021, STOP DATE- 08-OCT-2021
     Route: 048
  5. AUGMENTIN [Suspect]
     Active Substance: AMOXICILLIN\CLAVULANATE POTASSIUM
     Indication: Antibiotic therapy
     Dosage: START DATE- 13-SEP-2021, STOP DATE- 17-SEP-2021
     Route: 042
  6. AUGMENTIN [Suspect]
     Active Substance: AMOXICILLIN\CLAVULANATE POTASSIUM
     Dosage: START DATE- 15-OCT-2021, STOP DATE- 21-OCT-2021
     Route: 042
  7. AUGMENTIN [Suspect]
     Active Substance: AMOXICILLIN\CLAVULANATE POTASSIUM
     Dosage: START DATE- 26-OCT-2021, STOP DATE- 29-OCT-2021
     Route: 042
  8. AUGMENTIN [Suspect]
     Active Substance: AMOXICILLIN\CLAVULANATE POTASSIUM
     Dosage: START DATE- 29-OCT-2021 , STOP DATE- 02-NOV-2021
     Route: 048
  9. CIPROFLOXACIN [Suspect]
     Active Substance: CIPROFLOXACIN
     Indication: Antibiotic therapy
     Dosage: UNK, START DATE- 02-NOV-2021, STOP DATE 08-NOV-2021
     Route: 065
  10. FLAGYL [Suspect]
     Active Substance: METRONIDAZOLE\METRONIDAZOLE HYDROCHLORIDE
     Dosage: UNK, START DATE- 02-NOV-2021,  STOP DATE-08-NOV-2021
     Route: 065
  11. FLAGYL [Suspect]
     Active Substance: METRONIDAZOLE\METRONIDAZOLE HYDROCHLORIDE
     Indication: Antibiotic therapy
     Dosage: UNK, START DATE- 13-SEP-2021, STOP DATE-V
     Route: 042
  12. FLAGYL [Suspect]
     Active Substance: METRONIDAZOLE\METRONIDAZOLE HYDROCHLORIDE
     Dosage: UNK, START DATE- 26-OCT-2021, STOP DATE- 29-OCT-2021
     Route: 042
  13. FLAGYL [Suspect]
     Active Substance: METRONIDAZOLE\METRONIDAZOLE HYDROCHLORIDE
     Dosage: UNK, STOP DATE- 15-OCT-2021, STOP DATE- 21-OCT-2021
     Route: 042
  14. PIPERACILLIN SODIUM\TAZOBACTAM SODIUM [Suspect]
     Active Substance: PIPERACILLIN SODIUM\TAZOBACTAM SODIUM
     Indication: Product used for unknown indication
     Dosage: START DATE- 24-SEP-2021, STOP DATE- 04-OCT-2021
     Route: 042
  15. VANCOMYCIN [Suspect]
     Active Substance: VANCOMYCIN
     Indication: Product used for unknown indication
     Dosage: 1275 MG, Q12H, 2G LOADING DOSE START DATE- 24-SEP-2021, STOP DATE - 29-SEP-2021
     Route: 042
  16. FENTANYL [Concomitant]
     Active Substance: FENTANYL
     Indication: Product used for unknown indication
     Dosage: UNK, REDUCED (PATCH)
     Route: 065
     Dates: start: 20210915
  17. HYDROCORTISONE [Concomitant]
     Active Substance: HYDROCORTISONE
     Dosage: 100 MG, Q12H
     Route: 042
     Dates: start: 20210919
  18. HYDROCORTISONE [Concomitant]
     Active Substance: HYDROCORTISONE
     Indication: Product used for unknown indication
     Dosage: 100 MG
     Route: 042
     Dates: start: 20210915
  19. PREDNISONE [Concomitant]
     Active Substance: PREDNISONE
     Indication: Product used for unknown indication
     Dosage: 5 MG
     Route: 065
     Dates: end: 20210914
  20. PREDNISONE [Concomitant]
     Active Substance: PREDNISONE
     Dosage: 5 MG
     Route: 065
     Dates: start: 20211007

REACTIONS (26)
  - Acute kidney injury [Fatal]
  - Abdominal sepsis [Fatal]
  - Renal failure [Fatal]
  - Enterococcal infection [Fatal]
  - COVID-19 [Fatal]
  - Refeeding syndrome [Unknown]
  - Gastrointestinal stoma output increased [Unknown]
  - Altered state of consciousness [Unknown]
  - Anaemia postoperative [Unknown]
  - Post procedural sepsis [Unknown]
  - Ileus [Unknown]
  - Inflammation [Unknown]
  - Weight decreased [Unknown]
  - Hypophagia [Unknown]
  - Lethargy [Unknown]
  - Pain [Unknown]
  - Fluid intake reduced [Unknown]
  - Slow response to stimuli [Unknown]
  - Pallor [Unknown]
  - Body temperature increased [Unknown]
  - Malnutrition [Unknown]
  - Malaise [Unknown]
  - Gait disturbance [Unknown]
  - Fatigue [Unknown]
  - Asthenia [Unknown]
  - Vomiting [Unknown]

NARRATIVE: CASE EVENT DATE: 20210101
